FAERS Safety Report 21751512 (Version 7)
Quarter: 2024Q4

REPORT INFORMATION
  Report Type: Report from Study
  Country: US (occurrence: US)
  Receive Date: 20221220
  Receipt Date: 20241015
  Transmission Date: 20250114
  Serious: No
  Sender: NOVARTIS
  Company Number: US-002147023-NVSC2022US293487

PATIENT
  Age: 79 Year
  Sex: Female

DRUGS (2)
  1. LEQVIO [Suspect]
     Active Substance: INCLISIRAN SODIUM
     Indication: Product used for unknown indication
     Dosage: UNK
     Route: 058
     Dates: start: 20221128
  2. LEQVIO [Suspect]
     Active Substance: INCLISIRAN SODIUM
     Dosage: UNK
     Route: 058
     Dates: start: 20230228

REACTIONS (8)
  - Urinary tract infection [Unknown]
  - Dysuria [Recovering/Resolving]
  - Injection site pain [Recovered/Resolved]
  - Headache [Unknown]
  - Blood calcium increased [Unknown]
  - Bladder discomfort [Unknown]
  - Dizziness [Unknown]
  - Psoriasis [Unknown]

NARRATIVE: CASE EVENT DATE: 20221128
